FAERS Safety Report 5718907-1 (Version None)
Quarter: 2008Q2

REPORT INFORMATION
  Report Type: 
  Country: None (occurrence: None)
  Receive Date: 20080425
  Receipt Date: 20080421
  Transmission Date: 20081010
  Serious: Yes (Other)
  Sender: FDA-Public Use
  Company Number: JP-PFIZER INC-2008035418

PATIENT
  Age: 64 Year
  Sex: Female

DRUGS (5)
  1. DETRUSITOL SR [Suspect]
     Dosage: DAILY DOSE:4MG
     Route: 048
     Dates: start: 20070401, end: 20080101
  2. CALBLOCK [Concomitant]
     Route: 048
  3. NU LOTAN [Concomitant]
     Route: 048
  4. MEVALOTIN [Concomitant]
     Route: 048
  5. HOCHUUEKKITOU [Concomitant]

REACTIONS (1)
  - CARDIAC HYPERTROPHY [None]
